FAERS Safety Report 5406956-2 (Version None)
Quarter: 2007Q3

REPORT INFORMATION
  Report Type: 
  Country: None (occurrence: None)
  Receive Date: 20070803
  Receipt Date: 20070803
  Transmission Date: 20080115
  Serious: Yes (Hospitalization, Disabling)
  Sender: FDA-Public Use
  Company Number: None

PATIENT
  Age: 50 Year
  Sex: Female
  Weight: 68.0396 kg

DRUGS (1)
  1. DILANTIN [Suspect]
     Indication: CONVULSION
     Dosage: 200MG AM/ 300MG PM TWO TIMES A DAY PO PO
     Route: 048
     Dates: start: 20070417, end: 20070722

REACTIONS (4)
  - ANTICONVULSANT DRUG LEVEL DECREASED [None]
  - AURA [None]
  - GRAND MAL CONVULSION [None]
  - PHARMACEUTICAL PRODUCT COMPLAINT [None]
